FAERS Safety Report 5345776-4 (Version None)
Quarter: 2007Q2

REPORT INFORMATION
  Report Type: 
  Country: None (occurrence: None)
  Receive Date: 20070601
  Receipt Date: 20070529
  Transmission Date: 20071010
  Serious: Yes (Death, Other)
  Sender: FDA-Public Use
  Company Number: 2007SP004036

PATIENT
  Age: 60 Year
  Sex: Female
  Weight: 60 kg

DRUGS (15)
  1. TEMODAL [Suspect]
     Indication: GLIOBLASTOMA MULTIFORME
     Dosage: 150 MG/M2; QD; PO
     Route: 048
     Dates: start: 20061120, end: 20061124
  2. TEMODAL [Suspect]
     Indication: RECURRENT CANCER
     Dosage: 150 MG/M2; QD; PO
     Route: 048
     Dates: start: 20061120, end: 20061124
  3. TEMODAL [Suspect]
     Indication: GLIOBLASTOMA MULTIFORME
     Dosage: 150 MG/M2; QD; PO
     Route: 048
     Dates: start: 20061218, end: 20061222
  4. TEMODAL [Suspect]
     Indication: RECURRENT CANCER
     Dosage: 150 MG/M2; QD; PO
     Route: 048
     Dates: start: 20061218, end: 20061222
  5. FERON (PREV.) [Concomitant]
  6. NIDRAN (PREV.) [Concomitant]
  7. BAKTAR (CON.) [Concomitant]
  8. RINDERON (CON.) [Concomitant]
  9. NOVORAPID (CON.) [Concomitant]
  10. ZANTAC (CON.) [Concomitant]
  11. MAXIPIME (CON.) [Concomitant]
  12. AMOBAN (CON.) [Concomitant]
  13. WARFAROM (CON.) [Concomitant]
  14. ZOFRAN ZYDIS (CON.) [Concomitant]
  15. MAGNESIUM OXIDE (CON.) [Concomitant]

REACTIONS (2)
  - DISEASE PROGRESSION [None]
  - HEPATIC FUNCTION ABNORMAL [None]
